FAERS Safety Report 8165568-0 (Version None)
Quarter: 2012Q1

REPORT INFORMATION
  Report Type: 
  Country: None (occurrence: None)
  Receive Date: 20120223
  Receipt Date: 20120223
  Transmission Date: 20120608
  Serious: Yes (Other)
  Sender: FDA-Public Use
  Company Number: None

PATIENT
  Sex: Male
  Weight: 146.0582 kg

DRUGS (2)
  1. PRADAXA [Suspect]
     Dosage: 150 MG 1 X DAY
     Dates: start: 20110801
  2. PRADAXA [Suspect]
     Dosage: 150 MG 1 X DAY
     Dates: start: 20111201

REACTIONS (11)
  - ASTHENIA [None]
  - OEDEMA PERIPHERAL [None]
  - ABDOMINAL PAIN UPPER [None]
  - EATING DISORDER [None]
  - DISTURBANCE IN ATTENTION [None]
  - CONSTIPATION [None]
  - JOINT SWELLING [None]
  - INSOMNIA [None]
  - DIZZINESS [None]
  - GAIT DISTURBANCE [None]
  - MENTAL IMPAIRMENT [None]
